FAERS Safety Report 17216743 (Version 1)
Quarter: 2019Q4

REPORT INFORMATION
  Report Type: Report from Study
  Country: US (occurrence: US)
  Receive Date: 20191230
  Receipt Date: 20191230
  Transmission Date: 20200122
  Serious: Yes (Death)
  Sender: FDA-Public Use
  Company Number: US-ROCHE-2468740

PATIENT
  Age: 72 Year
  Sex: Female

DRUGS (4)
  1. QUESTRAN [Concomitant]
     Active Substance: CHOLESTYRAMINE
  2. LUCENTIS [Suspect]
     Active Substance: RANIBIZUMAB
     Indication: RETINAL VEIN OCCLUSION
     Route: 065
     Dates: start: 20180115, end: 20190215
  3. HYDROCHLOROTHIAZIDE. [Concomitant]
     Active Substance: HYDROCHLOROTHIAZIDE
     Route: 048
  4. GLIMEPIRIDE. [Concomitant]
     Active Substance: GLIMEPIRIDE

REACTIONS (1)
  - Death [Fatal]

NARRATIVE: CASE EVENT DATE: 20190311
